FAERS Safety Report 12157945 (Version 1)
Quarter: 2016Q1

REPORT INFORMATION
  Report Type: Spontaneous
  Country: US (occurrence: None)
  Receive Date: 20160307
  Receipt Date: 20160307
  Transmission Date: 20160526
  Serious: No
  Sender: FDA-Public Use
  Company Number: None

PATIENT
  Age: 60 Year
  Sex: Female

DRUGS (5)
  1. FLUTICASONE NASAL SPRAY [Concomitant]
     Active Substance: FLUTICASONE\FLUTICASONE PROPIONATE
  2. CHLORZOXAZONE. [Suspect]
     Active Substance: CHLORZOXAZONE
     Indication: LIGAMENT SPRAIN
     Route: 048
     Dates: start: 20160226, end: 20160229
  3. MELOXICAM. [Suspect]
     Active Substance: MELOXICAM
     Indication: INFLAMMATION
     Route: 048
     Dates: start: 20160219, end: 20160304
  4. BIO-FREEZE [Concomitant]
  5. TRIAMTERENE 75/50 HTC [Concomitant]

REACTIONS (8)
  - Pruritus [None]
  - Feeling abnormal [None]
  - Injury [None]
  - Eye disorder [None]
  - Rash macular [None]
  - Rash pruritic [None]
  - Dizziness [None]
  - Photopsia [None]

NARRATIVE: CASE EVENT DATE: 20160222
